FAERS Safety Report 23083147 (Version 1)
Quarter: 2023Q4

REPORT INFORMATION
  Report Type: Spontaneous
  Country: US (occurrence: None)
  Receive Date: 20231018
  Receipt Date: 20231018
  Transmission Date: 20240110
  Serious: Yes (Hospitalization)
  Sender: FDA-Public Use
  Company Number: None

PATIENT
  Age: 80 Year
  Sex: Male
  Weight: 56.2 kg

DRUGS (1)
  1. ERTAPENEM. [Suspect]
     Active Substance: ERTAPENEM SODIUM
     Dosage: FREQUENCY : DAILY;?
     Route: 042
     Dates: start: 20221123, end: 20221207

REACTIONS (6)
  - Confusional state [None]
  - Delirium [None]
  - Hallucination [None]
  - Tremor [None]
  - Foot amputation [None]
  - Mental disorder [None]

NARRATIVE: CASE EVENT DATE: 20221207
